FAERS Safety Report 21041357 (Version 1)
Quarter: 2022Q3

REPORT INFORMATION
  Report Type: Spontaneous
  Country: MY (occurrence: MY)
  Receive Date: 20220705
  Receipt Date: 20220705
  Transmission Date: 20221027
  Serious: Yes (Other)
  Sender: FDA-Public Use
  Company Number: MY-JNJFOC-20220664269

PATIENT
  Age: 71 Year
  Sex: Male

DRUGS (1)
  1. SPORANOX [Suspect]
     Active Substance: ITRACONAZOLE
     Indication: Infection
     Route: 048

REACTIONS (3)
  - Dyspnoea [Recovering/Resolving]
  - Joint swelling [Recovering/Resolving]
  - Effusion [Recovering/Resolving]
